FAERS Safety Report 17619123 (Version 1)
Quarter: 2020Q2

REPORT INFORMATION
  Report Type: Spontaneous
  Country: US (occurrence: US)
  Receive Date: 20200402
  Receipt Date: 20200402
  Transmission Date: 20200713
  Serious: No
  Sender: FDA-Public Use
  Company Number: US-LANNETT COMPANY, INC.-US-2020LAN000036

PATIENT
  Sex: Male

DRUGS (1)
  1. METHYLPHENIDATE HCL ER CAPSULES CD [Suspect]
     Active Substance: METHYLPHENIDATE HYDROCHLORIDE
     Indication: PRODUCT USED FOR UNKNOWN INDICATION
     Dosage: 40 MG, UNK
     Route: 048

REACTIONS (4)
  - Abnormal behaviour [Unknown]
  - Drug ineffective [Unknown]
  - Product formulation issue [Unknown]
  - Dysphagia [Recovering/Resolving]
